FAERS Safety Report 20690997 (Version 1)
Quarter: 2022Q2

REPORT INFORMATION
  Report Type: Spontaneous
  Country: PL (occurrence: PL)
  Receive Date: 20220408
  Receipt Date: 20220408
  Transmission Date: 20220720
  Serious: Yes (Other)
  Sender: FDA-Public Use
  Company Number: PL-GLAXOSMITHKLINE-PLCH2022EME013203

PATIENT
  Age: 31 Year
  Sex: Male

DRUGS (6)
  1. DICLOFENAC [Interacting]
     Active Substance: DICLOFENAC
     Indication: Sacral pain
     Dosage: 150 MG, QD
  2. TADALAFIL [Interacting]
     Active Substance: TADALAFIL
     Indication: Erectile dysfunction
     Dosage: 10 MG SHORT-TERM BASIS
  3. SERTRALINE [Suspect]
     Active Substance: SERTRALINE HYDROCHLORIDE
     Indication: Insomnia
     Dosage: 50 MG, QD
  4. RAMIPRIL [Concomitant]
     Active Substance: RAMIPRIL
     Indication: Hypotension
     Dosage: UNK
  5. ATORVASTATIN [Concomitant]
     Active Substance: ATORVASTATIN
     Indication: Product used for unknown indication
     Dosage: UNK
  6. ACETAMINOPHEN\TRAMADOL [Concomitant]
     Active Substance: ACETAMINOPHEN\TRAMADOL
     Indication: Sacral pain
     Dosage: UNK UNK, BID

REACTIONS (13)
  - Sacral pain [Recovered/Resolved]
  - Condition aggravated [Recovered/Resolved]
  - Erectile dysfunction [Recovered/Resolved]
  - Ill-defined disorder [Unknown]
  - Insomnia [Recovering/Resolving]
  - Affective disorder [Recovering/Resolving]
  - Anorgasmia [Recovered/Resolved]
  - Drug interaction [Unknown]
  - Tachycardia [Unknown]
  - Tachypnoea [Unknown]
  - Depression [Unknown]
  - Neuralgia [Recovered/Resolved]
  - Drug ineffective [Unknown]
